FAERS Safety Report 7683888-0 (Version None)
Quarter: 2011Q3

REPORT INFORMATION
  Report Type: 
  Country: None (occurrence: None)
  Receive Date: 20110815
  Receipt Date: 20110811
  Transmission Date: 20111222
  Serious: Yes (Other)
  Sender: FDA-Public Use
  Company Number: US-AMGEN-USASP2011037706

PATIENT
  Sex: Female
  Weight: 85 kg

DRUGS (7)
  1. VITAMIN 15 [Concomitant]
  2. IMMUNOGLOBULINS [Concomitant]
  3. VITAMIN C                          /00008001/ [Concomitant]
  4. FOLIC ACID [Concomitant]
     Dosage: 1 UNK, UNK
  5. MULTIVITAMIN                       /00097801/ [Concomitant]
  6. NPLATE [Suspect]
     Indication: IDIOPATHIC THROMBOCYTOPENIC PURPURA
     Dosage: UNK
     Route: 058
     Dates: start: 20050714
  7. CALCIUM +VIT D [Concomitant]

REACTIONS (1)
  - BONE MARROW RETICULIN FIBROSIS [None]
